FAERS Safety Report 9444025 (Version 1)
Quarter: 2013Q3

REPORT INFORMATION
  Report Type: Spontaneous
  Country: US (occurrence: US)
  Receive Date: 20130807
  Receipt Date: 20130807
  Transmission Date: 20140515
  Serious: Yes (Hospitalization)
  Sender: FDA-Public Use
  Company Number: US-MERCK-1308USA000634

PATIENT
  Age: 50 Year
  Sex: Female

DRUGS (6)
  1. SAPHRIS [Suspect]
     Indication: BIPOLAR DISORDER
     Dosage: RAPID,DISSOLVE  10 MG, UNK
     Route: 060
     Dates: start: 201307
  2. SEROQUEL XR [Suspect]
     Dosage: 400 MG, UNK
  3. SEROQUEL XR [Suspect]
     Dosage: 100 MG,UNK
     Dates: start: 201307
  4. HALDOL [Suspect]
     Dosage: UNK
     Dates: start: 201307
  5. GEODON [Suspect]
     Dosage: UNK
     Dates: start: 201307
  6. [THERAPY UNSPECIFIED] [Concomitant]

REACTIONS (1)
  - Catatonia [Unknown]
